FAERS Safety Report 9664428 (Version 2)
Quarter: 2013Q4

REPORT INFORMATION
  Report Type: Spontaneous
  Country: IN (occurrence: IN)
  Receive Date: 20131101
  Receipt Date: 20131101
  Transmission Date: 20140711
  Serious: Yes (Hospitalization)
  Sender: FDA-Public Use
  Company Number: IN-SA-THYM-1003977

PATIENT
  Age: 56 Year
  Sex: Male
  Weight: 60 kg

DRUGS (6)
  1. THYMOGLOBULINE [Suspect]
     Indication: BONE MARROW CONDITIONING REGIMEN
     Dosage: UNK(1-1.5 MG/KG) INJECTION
     Route: 065
     Dates: start: 20130426, end: 20130426
  2. THYMOGLOBULINE [Suspect]
     Indication: BONE MARROW CONDITIONING REGIMEN
     Dosage: UNK(1-1.5 MG/KG) INJECTION
     Route: 065
     Dates: start: 20130428, end: 20130428
  3. THYMOGLOBULINE [Suspect]
     Indication: BONE MARROW CONDITIONING REGIMEN
     Dosage: UNK(1-1.5 MG/KG) INJECTION
     Route: 065
     Dates: start: 20130430, end: 20130430
  4. TACROLIMUS [Concomitant]
     Dates: start: 20130426
  5. MYCOPHENOLATE MOFETIL [Concomitant]
     Dates: start: 20130426
  6. PREDNISOLONE [Concomitant]
     Dosage: 30 MG BD
     Dates: start: 20130502

REACTIONS (1)
  - Transplant rejection [Recovered/Resolved with Sequelae]
